FAERS Safety Report 7334785-1 (Version None)
Quarter: 2011Q1

REPORT INFORMATION
  Report Type: 
  Country: None (occurrence: None)
  Receive Date: 20110307
  Receipt Date: 20110224
  Transmission Date: 20110831
  Serious: No
  Sender: FDA-Public Use
  Company Number: US-JNJFOC-20110300439

PATIENT
  Sex: Female
  Weight: 43.09 kg

DRUGS (10)
  1. MIRALAX [Concomitant]
     Indication: NAUSEA
     Dosage: AS NEEDED
     Route: 048
  2. NORVASC [Concomitant]
     Indication: BLOOD PRESSURE
     Route: 048
  3. RECLAST [Concomitant]
     Indication: BONE DENSITY DECREASED
     Route: 042
  4. AMITIZA [Concomitant]
     Indication: CONSTIPATION
     Route: 048
  5. HYOMAX [Concomitant]
     Indication: CONSTIPATION
     Dosage: 0.125 AS NEEDED
     Route: 048
  6. MEGESTROL ACETATE [Concomitant]
     Indication: DECREASED APPETITE
     Dosage: AS NEEDED
     Route: 048
  7. ZOFRAN [Concomitant]
     Indication: NAUSEA
     Dosage: AS NEEDED
     Route: 048
  8. FENTANYL-100 [Suspect]
     Indication: BACK PAIN
     Route: 062
  9. COZAAR [Concomitant]
     Indication: BLOOD PRESSURE
     Route: 048
  10. PREMARIN [Concomitant]
     Indication: HORMONE THERAPY
     Route: 048

REACTIONS (7)
  - SLEEP DISORDER [None]
  - INSOMNIA [None]
  - DRUG DOSE OMISSION [None]
  - GASTROENTERITIS VIRAL [None]
  - SCIATICA [None]
  - INAPPROPRIATE SCHEDULE OF DRUG ADMINISTRATION [None]
  - APPLICATION SITE RASH [None]
